FAERS Safety Report 12791656 (Version 2)
Quarter: 2016Q4

REPORT INFORMATION
  Report Type: Spontaneous
  Country: JP (occurrence: JP)
  Receive Date: 20160929
  Receipt Date: 20161013
  Transmission Date: 20170207
  Serious: Yes (Other)
  Sender: FDA-Public Use
  Company Number: JP-SHIONOGI, INC-2016000927

PATIENT
  Sex: Male

DRUGS (1)
  1. FINIBAX [Suspect]
     Active Substance: DORIPENEM MONOHYDRATE
     Indication: PNEUMONIA
     Dosage: 0.25 G, TID
     Route: 041
     Dates: start: 20160920, end: 20160922

REACTIONS (1)
  - Depressed level of consciousness [Recovering/Resolving]
